FAERS Safety Report 23374691 (Version 1)
Quarter: 2024Q1

REPORT INFORMATION
  Report Type: Other
  Country: FR (occurrence: FR)
  Receive Date: 20240105
  Receipt Date: 20240105
  Transmission Date: 20240409
  Serious: Yes (Hospitalization, Other)
  Sender: FDA-Public Use
  Company Number: FR-MEN-2023-055480

PATIENT
  Age: 11 Year
  Sex: Male

DRUGS (6)
  1. RANEXA [Suspect]
     Active Substance: RANOLAZINE
     Indication: Timothy syndrome
     Route: 048
     Dates: start: 20200302, end: 20200304
  2. RANEXA [Suspect]
     Active Substance: RANOLAZINE
     Indication: Timothy syndrome
     Route: 048
     Dates: start: 20200304, end: 2020
  3. RANEXA [Suspect]
     Active Substance: RANOLAZINE
     Indication: Timothy syndrome
     Route: 048
     Dates: start: 2020, end: 2021
  4. RANEXA [Suspect]
     Active Substance: RANOLAZINE
     Indication: Timothy syndrome
     Dates: start: 202104
  5. RANEXA [Suspect]
     Active Substance: RANOLAZINE
     Indication: Timothy syndrome
     Dosage: 750 MG, QD
     Route: 048
  6. NADOLOL [Concomitant]
     Active Substance: NADOLOL
     Indication: Product used for unknown indication

REACTIONS (3)
  - Product use in unapproved indication [Not Recovered/Not Resolved]
  - Product use issue [Not Recovered/Not Resolved]
  - No adverse event [Unknown]

NARRATIVE: CASE EVENT DATE: 20200302
